FAERS Safety Report 24451562 (Version 3)
Quarter: 2024Q4

REPORT INFORMATION
  Report Type: Spontaneous
  Country: US (occurrence: US)
  Receive Date: 20241017
  Receipt Date: 20241223
  Transmission Date: 20250115
  Serious: No
  Sender: PFIZER
  Company Number: US-PFIZER INC-PV202400121654

PATIENT
  Age: 76 Year
  Sex: Female

DRUGS (4)
  1. BRAFTOVI [Suspect]
     Active Substance: ENCORAFENIB
     Indication: Adenocarcinoma of appendix
     Dosage: 300 MG, 1X/DAY (75MG, TAKE 4 CAPSULE (300MG) ONCE DAILY)
     Route: 048
  2. BRAFTOVI [Suspect]
     Active Substance: ENCORAFENIB
     Indication: Breast cancer
  3. XANAX [Concomitant]
     Active Substance: ALPRAZOLAM
     Dosage: UNK, AS NEEDED
  4. NEURONTIN [Concomitant]
     Active Substance: GABAPENTIN
     Dosage: 100 MG, 2X/DAY (FOR 180 DAYS)
     Route: 048

REACTIONS (4)
  - Acne [Unknown]
  - Skin disorder [Unknown]
  - Illness [Unknown]
  - Off label use [Unknown]
